FAERS Safety Report 24672816 (Version 3)
Quarter: 2025Q2

REPORT INFORMATION
  Report Type: Spontaneous
  Country: US (occurrence: US)
  Receive Date: 20241128
  Receipt Date: 20250526
  Transmission Date: 20250717
  Serious: No
  Sender: MERCK SHARP & DOHME LLC
  Company Number: US-009507513-2410USA012878

PATIENT
  Sex: Female
  Weight: 101.1 kg

DRUGS (25)
  1. SOTATERCEPT [Suspect]
     Active Substance: SOTATERCEPT
  2. SOTATERCEPT [Suspect]
     Active Substance: SOTATERCEPT
  3. SOTATERCEPT [Suspect]
     Active Substance: SOTATERCEPT
  4. SOTATERCEPT [Suspect]
     Active Substance: SOTATERCEPT
  5. SOTATERCEPT [Suspect]
     Active Substance: SOTATERCEPT
  6. REMODULIN [Suspect]
     Active Substance: TREPROSTINIL
     Indication: Pulmonary arterial hypertension
     Route: 041
     Dates: start: 20230907
  7. TADALAFIL [Concomitant]
     Active Substance: TADALAFIL
  8. OMEPRAZOLE [Concomitant]
     Active Substance: OMEPRAZOLE
  9. MIRALAX [Concomitant]
     Active Substance: POLYETHYLENE GLYCOL 3350
  10. POTASSIUM CHLORIDE [Concomitant]
     Active Substance: POTASSIUM CHLORIDE
  11. MIRTAZAPINE [Concomitant]
     Active Substance: MIRTAZAPINE
  12. JARDIANCE [Concomitant]
     Active Substance: EMPAGLIFLOZIN
  13. MINERALS\VITAMINS [Concomitant]
     Active Substance: MINERALS\VITAMINS
  14. OPSUMIT [Concomitant]
     Active Substance: MACITENTAN
  15. BIOFREEZE [Concomitant]
     Active Substance: MENTHOL
  16. IMODIUM A-D [Concomitant]
     Active Substance: LOPERAMIDE HYDROCHLORIDE
  17. OXYGEN [Concomitant]
     Active Substance: OXYGEN
  18. BUMETANIDE [Concomitant]
     Active Substance: BUMETANIDE
  19. ACETAMINOPHEN [Concomitant]
     Active Substance: ACETAMINOPHEN
  20. GABAPENTIN [Concomitant]
     Active Substance: GABAPENTIN
  21. DIGOXIN [Concomitant]
     Active Substance: DIGOXIN
  22. ASPIRIN [Concomitant]
     Active Substance: ASPIRIN
  23. HYDROCHLOROTHIAZIDE\SPIRONOLACTONE [Concomitant]
     Active Substance: HYDROCHLOROTHIAZIDE\SPIRONOLACTONE
  24. RISPERDAL [Concomitant]
     Active Substance: RISPERIDONE
  25. UBRELVY [Concomitant]
     Active Substance: UBROGEPANT

REACTIONS (2)
  - Gingival bleeding [Unknown]
  - Platelet count decreased [Unknown]
